FAERS Safety Report 4282586-3 (Version None)
Quarter: 2004Q1

REPORT INFORMATION
  Report Type: 
  Country: None (occurrence: None)
  Receive Date: 20040130
  Receipt Date: 20020321
  Transmission Date: 20041129
  Serious: No
  Sender: FDA-Public Use
  Company Number: US-BRISTOL-MYERS SQUIBB COMPANY-11784311

PATIENT
  Age: 32 Year
  Sex: Male
  Weight: 91 kg

DRUGS (1)
  1. SERZONE [Suspect]
     Indication: DEPRESSION
     Dosage: 2 1/2 TABLETS IN THE MORNING AND 2 1/2 TABLETS AT NIGHT FOR ^OVER 1 YEAR^
     Route: 048

REACTIONS (4)
  - DIZZINESS [None]
  - HEPATIC ENZYME INCREASED [None]
  - NAUSEA [None]
  - VOMITING [None]
